FAERS Safety Report 8547641-8 (Version None)
Quarter: 2012Q3

REPORT INFORMATION
  Report Type: 
  Country: None (occurrence: None)
  Receive Date: 20120727
  Receipt Date: 20120503
  Transmission Date: 20120928
  Serious: Yes (Other)
  Sender: FDA-Public Use
  Company Number: US-ASTRAZENECA-2012SE28883

PATIENT
  Age: 62 Year
  Sex: Female

DRUGS (19)
  1. METFORMIN HYDROCHLORIDE [Concomitant]
  2. NORVASC [Concomitant]
  3. CALCIUM W/D [Concomitant]
     Dosage: 1200/400 MG
  4. REGULAR INSULIN [Concomitant]
     Dosage: AS NEEDED
  5. PERCOCET [Concomitant]
  6. DOMPERIDONE [Concomitant]
  7. RESTORIL [Concomitant]
  8. LIDODERM [Concomitant]
     Dosage: 700 MG X 2 OR 3
  9. LANTUS [Concomitant]
     Dosage: 50-100 UNITS AT NIGHT
  10. ALBUTEROL [Concomitant]
     Dosage: AS NEEDED
     Route: 055
  11. SEROQUEL [Suspect]
     Route: 048
  12. SAVELLA [Concomitant]
  13. IRON [Concomitant]
  14. GLIPIZIDE [Concomitant]
  15. CYMBALTA [Concomitant]
  16. LISINOPRIL [Concomitant]
  17. M.V.I. [Concomitant]
     Dosage: DAILY
  18. ADVAIR DISKUS 100/50 [Concomitant]
     Dosage: 500/50 TWO TIMES A DAY
  19. ALPRAZOLAM [Concomitant]

REACTIONS (1)
  - CATARACT [None]
